FAERS Safety Report 8026045-0 (Version None)
Quarter: 2012Q1

REPORT INFORMATION
  Report Type: 
  Country: None (occurrence: None)
  Receive Date: 20120105
  Receipt Date: 20110728
  Transmission Date: 20120608
  Serious: No
  Sender: FDA-Public Use
  Company Number: US-ABBOTT-11P-163-0842716-00

PATIENT
  Sex: Female

DRUGS (8)
  1. PREVACID [Concomitant]
     Indication: GASTROOESOPHAGEAL REFLUX DISEASE
  2. XYZAL [Concomitant]
     Indication: SEASONAL ALLERGY
  3. PREMPRO [Concomitant]
     Indication: PRODUCT USED FOR UNKNOWN INDICATION
  4. CALCIUM ACETATE [Concomitant]
     Indication: PRODUCT USED FOR UNKNOWN INDICATION
  5. COZAAR [Concomitant]
     Indication: PRODUCT USED FOR UNKNOWN INDICATION
  6. SYNTHROID [Suspect]
     Indication: HYPOTHYROIDISM
     Dates: end: 20110501
  7. SYNTHROID [Suspect]
     Dates: start: 20110501
  8. LASIX [Concomitant]
     Indication: HYPERTENSION

REACTIONS (8)
  - FATIGUE [None]
  - ALOPECIA [None]
  - ANAEMIA [None]
  - DRY MOUTH [None]
  - MYALGIA [None]
  - WEIGHT INCREASED [None]
  - FEELING COLD [None]
  - THYROID FUNCTION TEST ABNORMAL [None]
